FAERS Safety Report 12804537 (Version 1)
Quarter: 2016Q4

REPORT INFORMATION
  Report Type: Spontaneous
  Country: US (occurrence: US)
  Receive Date: 20161003
  Receipt Date: 20161003
  Transmission Date: 20170207
  Serious: Yes (Disabling, Other)
  Sender: FDA-Public Use
  Company Number: US-ACORDA-ACO_128546_2016

PATIENT
  Sex: Female
  Weight: 47.62 kg

DRUGS (1)
  1. AMPYRA [Suspect]
     Active Substance: DALFAMPRIDINE
     Indication: GENE MUTATION
     Dosage: UNK
     Route: 048
     Dates: start: 2011

REACTIONS (10)
  - Inflammation [Unknown]
  - Abasia [Unknown]
  - Underweight [Recovered/Resolved]
  - Off label use [Unknown]
  - Therapy cessation [Unknown]
  - Meningitis [Unknown]
  - Wheelchair user [Unknown]
  - Muscle disorder [Unknown]
  - Temperature intolerance [Recovered/Resolved]
  - Fatigue [Recovered/Resolved]
